FAERS Safety Report 14398185 (Version 3)
Quarter: 2025Q3

REPORT INFORMATION
  Report Type: Spontaneous
  Country: CN (occurrence: CN)
  Receive Date: 20180116
  Receipt Date: 20250814
  Transmission Date: 20251020
  Serious: Yes (Death, Other)
  Sender: MERCK SHARP & DOHME LLC
  Company Number: CN-009507513-1801CHN005784

PATIENT
  Age: 62 Year
  Sex: Male

DRUGS (6)
  1. IMIPENEM AND CILASTATIN [Suspect]
     Active Substance: CILASTATIN SODIUM\IMIPENEM
     Indication: Anti-infective therapy
  2. CASPOFUNGIN [Suspect]
     Active Substance: CASPOFUNGIN
  3. TEICOPLANIN [Suspect]
     Active Substance: TEICOPLANIN
     Indication: Body temperature increased
  4. TIGECYCLINE [Suspect]
     Active Substance: TIGECYCLINE
     Indication: Body temperature increased
  5. CEFOPERAZONE SODIUM\SULBACTAM SODIUM [Suspect]
     Active Substance: CEFOPERAZONE SODIUM\SULBACTAM SODIUM
     Indication: Body temperature increased
  6. FOSFOMYCIN [Suspect]
     Active Substance: FOSFOMYCIN
     Indication: Body temperature increased

REACTIONS (2)
  - Klebsiella infection [Fatal]
  - Drug ineffective [Fatal]

NARRATIVE: CASE EVENT DATE: 20160101
